FAERS Safety Report 8218766-1 (Version None)
Quarter: 2012Q1

REPORT INFORMATION
  Report Type: 
  Country: None (occurrence: None)
  Receive Date: 20120319
  Receipt Date: 20120312
  Transmission Date: 20120608
  Serious: Yes (Hospitalization, Other)
  Sender: FDA-Public Use
  Company Number: PHEH2011US04561

PATIENT
  Sex: Male
  Weight: 62.585 kg

DRUGS (2)
  1. EXJADE [Suspect]
     Indication: SICKLE CELL ANAEMIA
     Dosage: 2000 MG,DAILY
     Route: 048
     Dates: start: 20060101, end: 20111109
  2. EXJADE [Suspect]
     Indication: IRON OVERLOAD
     Dosage: 2000 MG, DAILY
     Route: 048

REACTIONS (9)
  - BACK PAIN [None]
  - SERUM FERRITIN INCREASED [None]
  - ANAEMIA [None]
  - ARTHRALGIA [None]
  - SICKLE CELL ANAEMIA WITH CRISIS [None]
  - HAEMOGLOBIN DECREASED [None]
  - OSTEONECROSIS [None]
  - PULMONARY HYPERTENSION [None]
  - BLOOD LACTATE DEHYDROGENASE INCREASED [None]
